FAERS Safety Report 4406891-2 (Version None)
Quarter: 2004Q3

REPORT INFORMATION
  Report Type: 
  Country: None (occurrence: None)
  Receive Date: 20040715
  Receipt Date: 20040709
  Transmission Date: 20050211
  Serious: Yes (Hospitalization)
  Sender: FDA-Public Use
  Company Number: PERI00204002309

PATIENT
  Age: 82 Year
  Sex: Male
  Weight: 107 kg

DRUGS (6)
  1. COVERSYL (PERINDOPRIL) [Suspect]
     Indication: ILL-DEFINED DISORDER
     Dosage: 2 MG QD PO
     Dates: end: 20040307
  2. GENTAMICIN [Suspect]
     Indication: ILL-DEFINED DISORDER
     Dosage: 240 MG ONCE IV
     Route: 042
     Dates: start: 20040306, end: 20040306
  3. PANTOPRAZOLE (PANTOPRAZOLE) [Suspect]
     Indication: ILL-DEFINED DISORDER
     Dosage: 40 MG QD PO, 40 MG BID IV
     Route: 042
     Dates: start: 20040305, end: 20040312
  4. CEFTRIAXONE [Suspect]
     Indication: ILL-DEFINED DISORDER
     Dosage: 1 G BID IV
     Route: 042
     Dates: start: 20040304, end: 20040311
  5. FLUCLOXACILLIN (FLUCLOXACILLIN) [Suspect]
     Indication: ILL-DEFINED DISORDER
     Dosage: 2 G QID IV
     Route: 042
     Dates: start: 20040306, end: 20040309
  6. ALLOPURINOL [Concomitant]

REACTIONS (3)
  - EOSINOPHILIA [None]
  - RENAL COLIC [None]
  - RENAL IMPAIRMENT [None]
